FAERS Safety Report 9315525 (Version 3)
Quarter: 2013Q3

REPORT INFORMATION
  Report Type: Report from Study
  Country: US (occurrence: US)
  Receive Date: 20130529
  Receipt Date: 20130913
  Transmission Date: 20140515
  Serious: Yes (Death, Hospitalization)
  Sender: FDA-Public Use
  Company Number: US-ACTELION-A-US2013-81381

PATIENT
  Age: 73 Year
  Sex: Male

DRUGS (3)
  1. VENTAVIS [Suspect]
     Indication: PULMONARY ARTERIAL HYPERTENSION
     Dosage: UNK
     Route: 055
  2. LETAIRIS [Concomitant]
  3. COUMADIN [Concomitant]

REACTIONS (7)
  - Death [Fatal]
  - Lung infection [Not Recovered/Not Resolved]
  - Fluid retention [Unknown]
  - Pericardial effusion [Unknown]
  - Oedema peripheral [Unknown]
  - Drug dose omission [Unknown]
  - No therapeutic response [Unknown]
